FAERS Safety Report 18198594 (Version 1)
Quarter: 2020Q3

REPORT INFORMATION
  Report Type: Spontaneous
  Country: US (occurrence: US)
  Receive Date: 20200826
  Receipt Date: 20200826
  Transmission Date: 20201103
  Serious: Yes (Other)
  Sender: FDA-Public Use
  Company Number: NVSC2020US227956

PATIENT
  Sex: Male

DRUGS (1)
  1. MYFORTIC [Suspect]
     Active Substance: MYCOPHENOLATE SODIUM
     Indication: RENAL TRANSPLANT
     Dosage: 660 MG, BID
     Route: 065

REACTIONS (6)
  - Disturbance in attention [Unknown]
  - Pain [Unknown]
  - Vision blurred [Unknown]
  - Mental impairment [Unknown]
  - Neuralgia [Unknown]
  - Dysarthria [Unknown]
